FAERS Safety Report 19709839 (Version 1)
Quarter: 2021Q3

REPORT INFORMATION
  Report Type: Spontaneous
  Country: JP (occurrence: JP)
  Receive Date: 20210816
  Receipt Date: 20210816
  Transmission Date: 20211014
  Serious: Yes (Other)
  Sender: FDA-Public Use
  Company Number: JP-PFIZER INC-202100990930

PATIENT
  Age: 65 Year
  Sex: Female

DRUGS (1)
  1. ATARAX?P [Suspect]
     Active Substance: HYDROXYZINE HYDROCHLORIDE
     Indication: URTICARIA
     Dosage: UNK
     Route: 048

REACTIONS (1)
  - Drug dependence [Unknown]
